FAERS Safety Report 13726788 (Version 2)
Quarter: 2017Q3

REPORT INFORMATION
  Report Type: Spontaneous
  Country: AU (occurrence: AU)
  Receive Date: 20170707
  Receipt Date: 20170721
  Transmission Date: 20171127
  Serious: Yes (Life-Threatening)
  Sender: FDA-Public Use
  Company Number: AU-B.I. PHARMACEUTICALS,INC./RIDGEFIELD-2017-BI-037225

PATIENT
  Age: 61 Year
  Sex: Female
  Weight: 107 kg

DRUGS (6)
  1. NOVOMIX INSULIN [Concomitant]
     Indication: TYPE 2 DIABETES MELLITUS
     Dosage: 12 UNITS MANE
     Route: 065
     Dates: end: 201706
  2. NOVOMIX INSULIN [Concomitant]
     Dosage: 8 UNITS MANE
     Route: 065
  3. NOVOMIX INSULIN [Concomitant]
     Dosage: 10 UNITS NOCTE
     Route: 065
  4. CORTISONE [Concomitant]
     Active Substance: CORTISONE\HYDROCORTISONE
     Indication: PRODUCT USED FOR UNKNOWN INDICATION
     Route: 065
     Dates: start: 201705
  5. JARDIANCE [Suspect]
     Active Substance: EMPAGLIFLOZIN
     Indication: TYPE 2 DIABETES MELLITUS
     Route: 065
     Dates: start: 20170223, end: 20170628
  6. NOVOMIX INSULIN [Concomitant]
     Dosage: 16 UNITS NOCTE
     Route: 065

REACTIONS (11)
  - Blood ketone body increased [Recovered/Resolved]
  - Nausea [Recovered/Resolved]
  - Vomiting [Recovered/Resolved]
  - Polydipsia [Recovered/Resolved]
  - Weight decreased [Unknown]
  - Dehydration [Unknown]
  - Blood glucose increased [Unknown]
  - Hyperglycaemia [Recovered/Resolved]
  - Polyuria [Unknown]
  - Hypoglycaemia [Unknown]
  - Abdominal pain [Unknown]

NARRATIVE: CASE EVENT DATE: 201705
